FAERS Safety Report 11516498 (Version 2)
Quarter: 2015Q4

REPORT INFORMATION
  Report Type: Report from Study
  Country: US (occurrence: US)
  Receive Date: 20150917
  Receipt Date: 20151028
  Transmission Date: 20160304
  Serious: Yes (Hospitalization)
  Sender: FDA-Public Use
  Company Number: US-TEVA-593346USA

PATIENT
  Age: 72 Year
  Sex: Female
  Weight: 51.39 kg

DRUGS (5)
  1. FLUOROURACIL. [Suspect]
     Active Substance: FLUOROURACIL
     Indication: COLON CANCER
     Dosage: IV OVER 46-48 HOURS ON DAY 1
     Route: 065
     Dates: start: 20150401
  2. FLUOROURACIL. [Suspect]
     Active Substance: FLUOROURACIL
     Dosage: OVER 46-48 HOURS ON DAY 1
     Route: 042
     Dates: start: 20150401
  3. ELOXATIN [Suspect]
     Active Substance: OXALIPLATIN
     Indication: COLON CANCER
     Dosage: IV OVER 2 HOURS ON DAY 1
     Route: 065
     Dates: start: 20150401
  4. CELEBREX; PLACEBO [Suspect]
     Active Substance: CELECOXIB\PLACEBO
     Indication: COLON CANCER
     Dosage: BLINDED, INFORMATION WITHHELD
     Route: 042
     Dates: start: 20150414
  5. FOLINIC ACID [Suspect]
     Active Substance: LEUCOVORIN
     Indication: COLON CANCER
     Dosage: OVER 2 HOURS ON DAY 1
     Route: 042
     Dates: start: 20150401

REACTIONS (1)
  - Hypokalaemia [Recovered/Resolved]

NARRATIVE: CASE EVENT DATE: 20150414
